FAERS Safety Report 8811460 (Version 6)
Quarter: 2013Q1

REPORT INFORMATION
  Report Type: Spontaneous
  Country: US (occurrence: US)
  Receive Date: 20120927
  Receipt Date: 20130325
  Transmission Date: 20140127
  Serious: Yes (Other)
  Sender: FDA-Public Use
  Company Number: US-PFIZER INC-2012236458

PATIENT
  Age: 48 Year
  Sex: Female

DRUGS (1)
  1. XALKORI [Suspect]
     Indication: LUNG NEOPLASM MALIGNANT
     Dosage: 250 MG, 2X/DAY
     Route: 048
     Dates: start: 20120828, end: 20130318

REACTIONS (10)
  - Transient ischaemic attack [Unknown]
  - Pain [Unknown]
  - Paraesthesia [Recovered/Resolved]
  - Hypoaesthesia [Recovered/Resolved]
  - Visual impairment [Unknown]
  - Musculoskeletal stiffness [Unknown]
  - Toothache [Unknown]
  - Anxiety [Unknown]
  - Memory impairment [Unknown]
  - Back pain [Unknown]
